FAERS Safety Report 7702970-2 (Version None)
Quarter: 2011Q3

REPORT INFORMATION
  Report Type: 
  Country: None (occurrence: None)
  Receive Date: 20110823
  Receipt Date: 20110809
  Transmission Date: 20111222
  Serious: No
  Sender: FDA-Public Use
  Company Number: PHHY2011US07665

PATIENT
  Sex: Male

DRUGS (23)
  1. TASIGNA [Suspect]
     Dosage: 300 MG DAILY
  2. CALCIUM CARBONATE [Concomitant]
  3. ENALAPRIL MALEATE [Concomitant]
  4. CLARITIN [Concomitant]
  5. TASIGNA [Suspect]
  6. CLARINEX [Concomitant]
  7. LOPERAMIDE HCL [Concomitant]
  8. Q10 [Concomitant]
  9. ADVIL LIQUI-GELS [Concomitant]
  10. CELADRIN [Concomitant]
  11. VALIUM [Concomitant]
  12. FISH OIL [Concomitant]
  13. TASIGNA [Suspect]
     Dosage: 150 MG, BID
  14. PHOSPHATIDY SERINE [Concomitant]
  15. CELEBREX [Concomitant]
  16. CALADRYL [Concomitant]
  17. PHOSPHATIDYL SERINE [Concomitant]
  18. VITAMIN D [Concomitant]
  19. CINNAMON [Concomitant]
  20. BENADRYL [Concomitant]
  21. CRESTOR [Concomitant]
     Dosage: 5 MG, DAILY
  22. VITAMIN TAB [Concomitant]
  23. NAPROXEN (ALEVE) [Concomitant]

REACTIONS (8)
  - FEELING ABNORMAL [None]
  - GAIT DISTURBANCE [None]
  - MUSCULOSKELETAL STIFFNESS [None]
  - GYNAECOMASTIA [None]
  - FATIGUE [None]
  - MULTIPLE ALLERGIES [None]
  - ASTHENIA [None]
  - MYALGIA [None]
